FAERS Safety Report 15244114 (Version 1)
Quarter: 2018Q3

REPORT INFORMATION
  Report Type: Spontaneous
  Country: CN (occurrence: CN)
  Receive Date: 20180806
  Receipt Date: 20180806
  Transmission Date: 20181010
  Serious: Yes (Other)
  Sender: FDA-Public Use
  Company Number: CN-PFIZER INC-2018311910

PATIENT
  Age: 74 Year
  Sex: Female
  Weight: 40 kg

DRUGS (4)
  1. TAZOCIN [Concomitant]
     Active Substance: PIPERACILLIN SODIUM\TAZOBACTAM SODIUM
     Indication: PLEURAL EFFUSION
     Dosage: 4.5 G, 3X/DAY
     Route: 041
     Dates: start: 20180615, end: 20180625
  2. SODIUM CHLORIDE. [Concomitant]
     Active Substance: SODIUM CHLORIDE
     Dosage: 100 ML, 3X/DAY
     Route: 041
     Dates: start: 20180615, end: 20180625
  3. DIFLUCAN [Suspect]
     Active Substance: FLUCONAZOLE
     Indication: PLEURAL EFFUSION
     Dosage: 0.4 G, 1X/DAY
     Route: 041
     Dates: start: 20180615, end: 20180621
  4. SODIUM CHLORIDE. [Concomitant]
     Active Substance: SODIUM CHLORIDE
     Indication: VEHICLE SOLUTION USE
     Dosage: UNK, 1X/DAY
     Route: 041
     Dates: start: 20180615, end: 20180621

REACTIONS (2)
  - Disorganised speech [Recovered/Resolved]
  - Delirium [Recovered/Resolved]

NARRATIVE: CASE EVENT DATE: 20180621
